FAERS Safety Report 17840882 (Version 1)
Quarter: 2020Q2

REPORT INFORMATION
  Report Type: Spontaneous
  Country: GB (occurrence: GB)
  Receive Date: 20200529
  Receipt Date: 20200529
  Transmission Date: 20200714
  Serious: Yes (Life-Threatening, Hospitalization, Other)
  Sender: FDA-Public Use
  Company Number: GB-NOVOPROD-729433

PATIENT
  Age: 52 Year
  Sex: Female
  Weight: 64.3 kg

DRUGS (4)
  1. KLIOFEM [Suspect]
     Active Substance: ESTRADIOL\NORETHINDRONE ACETATE
     Indication: HORMONE REPLACEMENT THERAPY
     Dosage: 1 DF QD
     Route: 048
  2. SALBUTAMOL [Concomitant]
     Active Substance: ALBUTEROL
     Dosage: UNK
     Route: 065
  3. FLUTIFORM [Concomitant]
     Active Substance: FLUTICASONE PROPIONATE\FORMOTEROL FUMARATE
     Dosage: UNK
     Route: 065
  4. RAMIPRIL. [Concomitant]
     Active Substance: RAMIPRIL
     Dosage: UNK
     Route: 065

REACTIONS (16)
  - Constipation [Unknown]
  - Sinus tachycardia [Unknown]
  - Wheezing [Unknown]
  - Nausea [Unknown]
  - Abdominal pain [Unknown]
  - Presyncope [Unknown]
  - Flatulence [Unknown]
  - Lung opacity [Unknown]
  - Skin discolouration [Unknown]
  - Cardiomegaly [Unknown]
  - Thrombosis [Unknown]
  - Cough [Unknown]
  - Dyspnoea [Unknown]
  - Hyperhidrosis [Unknown]
  - Myocardial strain [Unknown]
  - Pulmonary embolism [Not Recovered/Not Resolved]
